FAERS Safety Report 6544974-1 (Version None)
Quarter: 2010Q1

REPORT INFORMATION
  Report Type: 
  Country: None (occurrence: None)
  Receive Date: 20100121
  Receipt Date: 20091207
  Transmission Date: 20100710
  Serious: Yes (Hospitalization, Congenital Anomaly)
  Sender: FDA-Public Use
  Company Number: A0681173A

PATIENT
  Sex: Female
  Weight: 3.9 kg

DRUGS (4)
  1. PAXIL [Suspect]
     Indication: PANIC ATTACK
  2. VITAMIN TAB [Concomitant]
  3. CLARITIN-D [Concomitant]
  4. BUSPAR [Concomitant]

REACTIONS (7)
  - CARDIAC FAILURE CONGESTIVE [None]
  - COGNITIVE DISORDER [None]
  - CONGENITAL ANOMALY [None]
  - CONGESTIVE CARDIOMYOPATHY [None]
  - CORONARY ARTERY DISEASE [None]
  - DRUG EXPOSURE DURING PREGNANCY [None]
  - MITRAL VALVE DISEASE [None]
